FAERS Safety Report 7720824-2 (Version None)
Quarter: 2011Q3

REPORT INFORMATION
  Report Type: 
  Country: None (occurrence: None)
  Receive Date: 20110831
  Receipt Date: 20110826
  Transmission Date: 20111222
  Serious: Yes (Other)
  Sender: FDA-Public Use
  Company Number: JP-BRISTOL-MYERS SQUIBB COMPANY-15979099

PATIENT
  Age: 61 Year
  Sex: Male

DRUGS (7)
  1. FOLIC ACID [Concomitant]
     Dates: start: 20100121
  2. METHOTREXATE [Suspect]
     Indication: RHEUMATOID ARTHRITIS
     Dosage: 750MG/MONTH(19MAY10-6OCT10);IV WITH ABATACEPT ARM 125MG/WK(19MAY10-27OCT10);SC WITH ABATACEPT ARM
     Dates: start: 20100210
  3. SALAZOSALFAPYRIDINE [Concomitant]
     Dates: start: 20110223
  4. ORENCIA [Suspect]
     Indication: RHEUMATOID ARTHRITIS
     Dosage: 750MG/MONTH(19MAY10-06OCT10);IV 125MG/WK(19MAY10-27OCT10);SC 02NOV-24AUG11
     Route: 058
     Dates: start: 20100519
  5. LOXOPROFEN SODIUM [Concomitant]
     Dates: start: 20100302
  6. PREDNISOLONE [Concomitant]
     Dates: start: 20100531
  7. REBAMIPIDE [Concomitant]
     Dates: start: 20091215

REACTIONS (1)
  - COLON CANCER [None]
